FAERS Safety Report 17007439 (Version 3)
Quarter: 2020Q1

REPORT INFORMATION
  Report Type: Spontaneous
  Country: GB (occurrence: GB)
  Receive Date: 20191108
  Receipt Date: 20200225
  Transmission Date: 20200409
  Serious: Yes (Other)
  Sender: FDA-Public Use
  Company Number: GB-SUN PHARMACEUTICAL INDUSTRIES LTD-2019RR-226684

PATIENT

DRUGS (10)
  1. CLOPIDOGREL [Concomitant]
     Active Substance: CLOPIDOGREL BISULFATE
     Indication: PRODUCT USED FOR UNKNOWN INDICATION
     Dosage: 75 MILLIGRAMS, UNK
     Route: 065
     Dates: start: 20170314, end: 201709
  2. AMLODIPINE [Concomitant]
     Active Substance: AMLODIPINE BESYLATE
     Indication: PRODUCT USED FOR UNKNOWN INDICATION
     Dosage: 5 MILLIGRAMS, DAILY
     Route: 065
     Dates: start: 20170314
  3. ATORVASTATIN [Suspect]
     Active Substance: ATORVASTATIN
     Indication: PROPHYLAXIS
  4. LANSOPRAZOLE. [Concomitant]
     Active Substance: LANSOPRAZOLE
     Indication: PRODUCT USED FOR UNKNOWN INDICATION
     Dosage: 30 MILLIGRAMS, DAILY
     Route: 065
     Dates: start: 20170314
  5. CETIRIZINE [Concomitant]
     Active Substance: CETIRIZINE HYDROCHLORIDE
     Indication: PERIORBITAL OEDEMA
     Dosage: UNK
     Route: 065
     Dates: start: 20170620, end: 2018
  6. CANDESARTAN. [Concomitant]
     Active Substance: CANDESARTAN
     Indication: PRODUCT USED FOR UNKNOWN INDICATION
     Dosage: 4 MILLIGRAMS, DAILY
     Route: 065
     Dates: start: 20180507
  7. RAMIPRIL. [Suspect]
     Active Substance: RAMIPRIL
     Indication: HYPERTENSION
     Dosage: MORNING.
     Route: 065
     Dates: start: 20170314, end: 2018
  8. BISOPROLOL [Concomitant]
     Active Substance: BISOPROLOL
     Indication: PRODUCT USED FOR UNKNOWN INDICATION
     Dosage: 2.5 MILLIGRAMS, UNK
     Route: 065
     Dates: start: 20170314, end: 20180428
  9. ATORVASTATIN [Suspect]
     Active Substance: ATORVASTATIN
     Indication: PROPHYLAXIS
     Dosage: IN THE MORNING
     Route: 065
     Dates: start: 20170310, end: 20180603
  10. ACETYLSALICYLIC ACID [Concomitant]
     Active Substance: ASPIRIN
     Indication: PRODUCT USED FOR UNKNOWN INDICATION
     Dosage: 75 MILLIGRAMS, DAILY
     Route: 065
     Dates: start: 20170314

REACTIONS (17)
  - Chromaturia [Unknown]
  - Palmar fasciitis [Unknown]
  - Angioedema [Recovered/Resolved]
  - Peripheral swelling [Not Recovered/Not Resolved]
  - Malaise [Unknown]
  - Myalgia [Recovering/Resolving]
  - Sleep disorder [Unknown]
  - Pruritus [Unknown]
  - Burning sensation [Unknown]
  - Musculoskeletal pain [Unknown]
  - Pain in extremity [Recovering/Resolving]
  - Muscle fatigue [Unknown]
  - Synovial cyst [Unknown]
  - Periorbital discomfort [Unknown]
  - Bursitis [Recovering/Resolving]
  - Tendon pain [Recovering/Resolving]
  - Joint swelling [Unknown]

NARRATIVE: CASE EVENT DATE: 20170617
